FAERS Safety Report 8485974-4 (Version None)
Quarter: 2012Q3

REPORT INFORMATION
  Report Type: 
  Country: None (occurrence: None)
  Receive Date: 20120703
  Receipt Date: 20120621
  Transmission Date: 20120928
  Serious: No
  Sender: FDA-Public Use
  Company Number: JP-BRISTOL-MYERS SQUIBB COMPANY-16690729

PATIENT

DRUGS (2)
  1. CLONAZEPAM [Concomitant]
  2. TAXOL [Suspect]
     Indication: OVARIAN CANCER
     Dosage: ROUTE:IV
     Route: 041

REACTIONS (1)
  - NEUROPATHY PERIPHERAL [None]
